FAERS Safety Report 7061626-2 (Version None)
Quarter: 2010Q4

REPORT INFORMATION
  Report Type: 
  Country: None (occurrence: None)
  Receive Date: 20101026
  Receipt Date: 20100421
  Transmission Date: 20110411
  Serious: No
  Sender: FDA-Public Use
  Company Number: US-ABBOTT-10P-163-0640892-00

PATIENT
  Age: 39 Year
  Sex: Female
  Weight: 77.634 kg

DRUGS (3)
  1. LUPRON DEPOT [Suspect]
     Indication: UTERINE LEIOMYOMA
     Route: 030
     Dates: start: 20060101, end: 20060101
  2. LUPRON DEPOT [Suspect]
     Route: 030
     Dates: start: 20100215, end: 20100215
  3. BLOOD PRESSURE MEDICATION [Concomitant]
     Indication: HYPERTENSION

REACTIONS (6)
  - ANXIETY [None]
  - DIZZINESS [None]
  - FATIGUE [None]
  - INSOMNIA [None]
  - PALPITATIONS [None]
  - UTERINE HAEMORRHAGE [None]
